FAERS Safety Report 15006505 (Version 1)
Quarter: 2018Q2

REPORT INFORMATION
  Report Type: Spontaneous
  Country: US (occurrence: US)
  Receive Date: 20180613
  Receipt Date: 20180613
  Transmission Date: 20180711
  Serious: Yes (Hospitalization)
  Sender: FDA-Public Use
  Company Number: US-US WORLDMEDS, LLC-USW201707-001089

PATIENT
  Age: 67 Year
  Sex: Female
  Weight: 52.16 kg

DRUGS (6)
  1. NEUPRO [Concomitant]
     Active Substance: ROTIGOTINE
  2. VALIUM [Concomitant]
     Active Substance: DIAZEPAM
  3. MORPHINE SULPHATE [Concomitant]
     Active Substance: MORPHINE SULFATE
     Indication: PAIN
  4. APOKYN [Suspect]
     Active Substance: APOMORPHINE HYDROCHLORIDE
     Indication: PARKINSON^S DISEASE
  5. LEVOTHYROXINE. [Concomitant]
     Active Substance: LEVOTHYROXINE
  6. SINEMET 25-100 [Concomitant]
     Indication: PARKINSON^S DISEASE

REACTIONS (3)
  - Oedema peripheral [Unknown]
  - Movement disorder [Unknown]
  - Pain [Unknown]
